FAERS Safety Report 14377324 (Version 1)
Quarter: 2018Q1

REPORT INFORMATION
  Report Type: Report from Study
  Country: US (occurrence: US)
  Receive Date: 20180111
  Receipt Date: 20180111
  Transmission Date: 20180509
  Serious: Yes (Other)
  Sender: FDA-Public Use
  Company Number: PHEH2018US000560

PATIENT
  Age: 53 Year
  Sex: Female

DRUGS (1)
  1. ZORTRESS [Suspect]
     Active Substance: EVEROLIMUS
     Indication: TRANSPLANT
     Dosage: 3 MG, BID
     Route: 048

REACTIONS (2)
  - Headache [Unknown]
  - Eye disorder [Unknown]

NARRATIVE: CASE EVENT DATE: 20180103
